FAERS Safety Report 8092656-X (Version None)
Quarter: 2012Q1

REPORT INFORMATION
  Report Type: 
  Country: None (occurrence: None)
  Receive Date: 20120131
  Receipt Date: 20120127
  Transmission Date: 20120608
  Serious: No
  Sender: FDA-Public Use
  Company Number: US-PFIZER INC-2012023624

PATIENT
  Sex: Male
  Weight: 95.238 kg

DRUGS (6)
  1. CHANTIX [Suspect]
     Dosage: 1 MG, 2X/DAY
  2. SPIRONOLACTONE [Concomitant]
     Indication: FLUID RETENTION
     Dosage: 100 MG, DAILY
  3. PROMETHAZINE [Concomitant]
     Indication: NAUSEA
     Dosage: 25 MG, DAILY
  4. LASIX [Concomitant]
     Indication: FLUID RETENTION
     Dosage: 40 MG, DAILY
  5. CHANTIX [Suspect]
     Indication: SMOKING CESSATION THERAPY
     Dosage: 0.5 MG, DAILY
     Dates: start: 20110907
  6. CHANTIX [Suspect]
     Dosage: 0.5 MG, DAILY
     Dates: start: 20110901

REACTIONS (4)
  - INSOMNIA [None]
  - WEIGHT INCREASED [None]
  - FLUID RETENTION [None]
  - AGITATION [None]
